FAERS Safety Report 10152603 (Version 3)
Quarter: 2014Q3

REPORT INFORMATION
  Report Type: Report from Study
  Country: RO (occurrence: RO)
  Receive Date: 20140505
  Receipt Date: 20140714
  Transmission Date: 20150326
  Serious: Yes (Hospitalization, Other)
  Sender: FDA-Public Use
  Company Number: RO-OTSUKA-US-2014-10891

PATIENT
  Age: 44 Year
  Sex: Male

DRUGS (5)
  1. BLINDED OPC-14597 [Suspect]
     Active Substance: CILOSTAZOL
     Dosage: 400 MG MILLIGRAM(S), UNK
     Route: 030
     Dates: start: 20140404, end: 20140404
  2. LORAZEPAM. [Concomitant]
     Active Substance: LORAZEPAM
     Indication: AGITATION
     Dosage: 0.5 MG MILLIGRAM(S), QD
     Route: 048
     Dates: start: 20140401, end: 20140404
  3. ZOLPIDEM [Concomitant]
     Active Substance: ZOLPIDEM\ZOLPIDEM TARTRATE
     Indication: INSOMNIA
     Dosage: 10 MG MILLIGRAM(S), QD
     Route: 048
     Dates: start: 20140401, end: 20140404
  4. BLINDED OPC-14597 [Suspect]
     Active Substance: CILOSTAZOL
     Indication: BIPOLAR I DISORDER
     Dosage: UNK
     Route: 065
     Dates: start: 20140221, end: 20140403
  5. BLINDED OPC-14597 [Suspect]
     Active Substance: CILOSTAZOL
     Dosage: UNK
     Route: 048
     Dates: end: 20140417

REACTIONS (2)
  - Depression [Recovering/Resolving]
  - Anxiety [Recovered/Resolved]

NARRATIVE: CASE EVENT DATE: 20140430
